FAERS Safety Report 21048643 (Version 1)
Quarter: 2022Q3

REPORT INFORMATION
  Report Type: Spontaneous
  Country: US (occurrence: None)
  Receive Date: 20220705
  Receipt Date: 20220705
  Transmission Date: 20221026
  Serious: Yes (unspecified)
  Sender: FDA-Public Use
  Company Number: None

PATIENT
  Age: 65 Year
  Sex: Male
  Weight: 106.1 kg

DRUGS (1)
  1. ELIGARD [Suspect]
     Active Substance: LEUPROLIDE ACETATE
     Indication: Prostate cancer
     Dosage: OTHER FREQUENCY : EVERY 6 MONTHS;?
     Route: 058
     Dates: start: 20210816, end: 20211102

REACTIONS (5)
  - Therapeutic product effect incomplete [None]
  - Product preparation error [None]
  - Wrong technique in product usage process [None]
  - Malignant neoplasm progression [None]
  - Prostate cancer [None]

NARRATIVE: CASE EVENT DATE: 20210816
